FAERS Safety Report 15235224 (Version 1)
Quarter: 2018Q3

REPORT INFORMATION
  Report Type: Spontaneous
  Country: US (occurrence: US)
  Receive Date: 20180709
  Receipt Date: 20180709
  Transmission Date: 20181010
  Serious: Yes (Hospitalization)
  Sender: FDA-Public Use
  Company Number: None

PATIENT
  Age: 71 Year
  Sex: Male
  Weight: 128.41 kg

DRUGS (1)
  1. MORPHINE [Suspect]
     Active Substance: MORPHINE
     Indication: PAIN
     Route: 048
     Dates: start: 20180606, end: 20180620

REACTIONS (5)
  - Confusional state [None]
  - Unresponsive to stimuli [None]
  - Disorientation [None]
  - Urinary tract infection [None]
  - Speech disorder [None]

NARRATIVE: CASE EVENT DATE: 20180608
